FAERS Safety Report 17798811 (Version 1)
Quarter: 2020Q2

REPORT INFORMATION
  Report Type: Spontaneous
  Country: CA (occurrence: CA)
  Receive Date: 20200518
  Receipt Date: 20200518
  Transmission Date: 20200714
  Serious: Yes (Hospitalization, Other)
  Sender: FDA-Public Use
  Company Number: CA-B.I. PHARMACEUTICALS,INC./RIDGEFIELD-2020-BI-024836

PATIENT
  Age: 38 Year
  Sex: Male

DRUGS (24)
  1. PREDNISONE. [Suspect]
     Active Substance: PREDNISONE
     Indication: PRODUCT USED FOR UNKNOWN INDICATION
     Route: 065
  2. SALBUTAMOL SULFATE [Suspect]
     Active Substance: ALBUTEROL SULFATE
     Indication: PRODUCT USED FOR UNKNOWN INDICATION
     Route: 065
  3. PREDNISONE. [Suspect]
     Active Substance: PREDNISONE
     Route: 048
  4. PREDNISONE. [Suspect]
     Active Substance: PREDNISONE
     Route: 065
  5. ZENHALE [Suspect]
     Active Substance: FORMOTEROL FUMARATE\MOMETASONE FUROATE
     Indication: PRODUCT USED FOR UNKNOWN INDICATION
     Dosage: DOSAGE FORM- AEROSOL METERED DOSE
     Route: 055
  6. VITAMIN B12 [COBAMAMIDE] [Concomitant]
     Indication: SUPPLEMENTATION THERAPY
     Route: 048
  7. PREDNISONE. [Suspect]
     Active Substance: PREDNISONE
     Route: 065
  8. PREDNISONE. [Suspect]
     Active Substance: PREDNISONE
     Route: 065
  9. VEDOLIZUMAB [Suspect]
     Active Substance: VEDOLIZUMAB
     Indication: COLITIS ULCERATIVE
     Route: 042
  10. SPIRIVA [Suspect]
     Active Substance: TIOTROPIUM BROMIDE MONOHYDRATE
     Indication: ASTHMA
     Route: 065
  11. OMNARIS [Suspect]
     Active Substance: CICLESONIDE
     Indication: PRODUCT USED FOR UNKNOWN INDICATION
     Dosage: DOSAGE FORM- SPRAY METERED DOSE
     Route: 065
  12. SYMBICORT [Suspect]
     Active Substance: BUDESONIDE\FORMOTEROL FUMARATE DIHYDRATE
     Indication: PRODUCT USED FOR UNKNOWN INDICATION
     Dosage: DOSAGE FORM- POWDER
     Route: 065
  13. TYLENOL [Suspect]
     Active Substance: ACETAMINOPHEN
     Indication: PRODUCT USED FOR UNKNOWN INDICATION
     Route: 065
  14. POLYSACCHARIDE-IRON COMPLEX [Concomitant]
     Active Substance: FERRIC POLYSACCHARIDE COMPLEX
     Indication: SUPPLEMENTATION THERAPY
     Route: 048
  15. METHOTREXATE. [Suspect]
     Active Substance: METHOTREXATE
     Indication: VASCULITIS
     Route: 065
  16. PREDNISONE. [Suspect]
     Active Substance: PREDNISONE
     Route: 065
  17. CALCIUM [Concomitant]
     Active Substance: CALCIUM
     Indication: SUPPLEMENTATION THERAPY
     Route: 065
  18. POLYSACCHARIDE-IRON COMPLEX [Concomitant]
     Active Substance: FERRIC POLYSACCHARIDE COMPLEX
     Route: 048
  19. FOLIC ACID. [Suspect]
     Active Substance: FOLIC ACID
     Indication: PRODUCT USED FOR UNKNOWN INDICATION
     Route: 065
  20. METHOTREXATE. [Suspect]
     Active Substance: METHOTREXATE
     Indication: PRODUCT USED FOR UNKNOWN INDICATION
     Route: 065
  21. PREDNISONE. [Suspect]
     Active Substance: PREDNISONE
     Route: 065
  22. SINGULAIR [Suspect]
     Active Substance: MONTELUKAST SODIUM
     Indication: ASTHMA
     Route: 065
  23. UMECLIDINIUM BROMIDE [Suspect]
     Active Substance: UMECLIDINIUM BROMIDE
     Indication: ASTHMA
     Route: 055
  24. VITAMIN D [VITAMIN D NOS] [Concomitant]
     Active Substance: VITAMIN D NOS
     Indication: SUPPLEMENTATION THERAPY
     Route: 065

REACTIONS (29)
  - Eosinophilia [Unknown]
  - Pericardial effusion [Unknown]
  - Treatment noncompliance [Unknown]
  - Anaemia [Unknown]
  - Decreased appetite [Unknown]
  - Headache [Unknown]
  - Obstructive airways disorder [Unknown]
  - Therapeutic product effect incomplete [Unknown]
  - Blood test abnormal [Unknown]
  - Gastrointestinal disorder [Unknown]
  - Myalgia [Unknown]
  - Sinusitis [Unknown]
  - Vasculitis [Unknown]
  - Asthma [Unknown]
  - Wheezing [Unknown]
  - Abdominal pain [Unknown]
  - Insomnia [Unknown]
  - Interstitial lung disease [Unknown]
  - Iron deficiency [Unknown]
  - Cough [Unknown]
  - Pulmonary function test decreased [Unknown]
  - Condition aggravated [Unknown]
  - Dyspnoea [Unknown]
  - Hypotension [Unknown]
  - Chest discomfort [Unknown]
  - Dyspnoea exertional [Unknown]
  - Photophobia [Unknown]
  - Rectal haemorrhage [Unknown]
  - Systolic dysfunction [Unknown]
